FAERS Safety Report 15656930 (Version 2)
Quarter: 2018Q4

REPORT INFORMATION
  Report Type: Spontaneous
  Country: CR (occurrence: CR)
  Receive Date: 20181126
  Receipt Date: 20181130
  Transmission Date: 20190205
  Serious: Yes (Hospitalization, Other)
  Sender: FDA-Public Use
  Company Number: CR-JNJFOC-20181129019

PATIENT
  Age: 35 Year
  Sex: Female

DRUGS (8)
  1. DIGOXIN. [Concomitant]
     Active Substance: DIGOXIN
     Indication: CARDIOSPASM
     Route: 065
     Dates: start: 20180830
  2. DIGOXIN-SPECIFIC ANTIBODY FRAGMENTS [Concomitant]
     Active Substance: DIGOXIN
     Indication: CARDIOSPASM
     Route: 065
     Dates: start: 20180830
  3. ILOPROST TROMETAMOL [Concomitant]
     Active Substance: ILOPROST TROMETHAMINE
     Indication: PULMONARY HYPERTENSION
     Route: 065
     Dates: start: 20181010
  4. PANTOPRAZOLE [Concomitant]
     Active Substance: PANTOPRAZOLE
     Indication: GASTRITIS
     Route: 065
     Dates: start: 20180830
  5. SILDENAFIL MK [Concomitant]
     Indication: PULMONARY ARTERIAL HYPERTENSION
     Route: 065
     Dates: start: 20180830
  6. XARELTO [Suspect]
     Active Substance: RIVAROXABAN
     Indication: THROMBOSIS
     Route: 048
     Dates: start: 20180830
  7. ILOPROST. [Suspect]
     Active Substance: ILOPROST
     Indication: THROMBOSIS
     Route: 065
     Dates: start: 20181010
  8. FUROSEMIDE. [Concomitant]
     Active Substance: FUROSEMIDE
     Indication: DIURETIC THERAPY
     Route: 065
     Dates: start: 20180830

REACTIONS (5)
  - Maternal exposure during pregnancy [Unknown]
  - Vaginal haemorrhage [Recovering/Resolving]
  - Caesarean section [Unknown]
  - Premature delivery [Unknown]
  - Haemoglobin decreased [Not Recovered/Not Resolved]

NARRATIVE: CASE EVENT DATE: 2018
